FAERS Safety Report 8230878-5 (Version None)
Quarter: 2012Q1

REPORT INFORMATION
  Report Type: 
  Country: None (occurrence: None)
  Receive Date: 20120321
  Receipt Date: 20120313
  Transmission Date: 20120608
  Serious: Yes (Other)
  Sender: FDA-Public Use
  Company Number: 2012-024941

PATIENT
  Sex: Female

DRUGS (2)
  1. PHILLIPS' MILK OF MAGNESIA LIQUID ORIGINAL (MAGNESIUM HYDROXIDE) ORAL [Suspect]
     Indication: PRODUCT USED FOR UNKNOWN INDICATION
     Dosage: CONSUMER TOOK THE PRODUCT IN THE MORNING
     Route: 048
  2. MIRALAX [Suspect]
     Indication: PRODUCT USED FOR UNKNOWN INDICATION
     Dosage: CONSUMER TOOK MIRALAX AT NIGHT, ORAL

REACTIONS (3)
  - DIARRHOEA [None]
  - HAEMORRHOIDAL HAEMORRHAGE [None]
  - ABDOMINAL PAIN [None]
